FAERS Safety Report 26184171 (Version 1)
Quarter: 2025Q4

REPORT INFORMATION
  Report Type: Report from Study
  Country: US (occurrence: US)
  Receive Date: 20251222
  Receipt Date: 20251222
  Transmission Date: 20260118
  Serious: Yes (Other)
  Sender: ABBVIE
  Company Number: US-ABBVIE-6593622

PATIENT
  Sex: Male

DRUGS (1)
  1. HUMIRA [Suspect]
     Active Substance: ADALIMUMAB
     Indication: Product used for unknown indication
     Route: 058
     Dates: start: 20201001, end: 20250615

REACTIONS (4)
  - Blindness unilateral [Unknown]
  - Craniofacial fracture [Unknown]
  - Corneal transplant [Unknown]
  - Accident [Unknown]
